FAERS Safety Report 15783581 (Version 2)
Quarter: 2019Q1

REPORT INFORMATION
  Report Type: Report from Study
  Country: BR (occurrence: BR)
  Receive Date: 20190102
  Receipt Date: 20190201
  Transmission Date: 20190417
  Serious: Yes (Other)
  Sender: FDA-Public Use
  Company Number: PHHY2018BR198481

PATIENT
  Age: 73 Year
  Sex: Female
  Weight: 84 kg

DRUGS (9)
  1. GALVUS [Suspect]
     Active Substance: VILDAGLIPTIN
     Indication: DIABETES MELLITUS
     Dosage: 50 MG, QD
     Route: 048
  2. DIOVAN HCT [Suspect]
     Active Substance: HYDROCHLOROTHIAZIDE\VALSARTAN
     Indication: HYPERTENSION
     Dosage: 1 DF (HYDROCHLOROTHIAZIDE 12.5MG, VALSARTAN 80 MG), QD (AT 8 AM)
     Route: 048
  3. GALVUS [Suspect]
     Active Substance: VILDAGLIPTIN
     Dosage: 50 MG, QD
     Route: 048
  4. VASTAREL [Concomitant]
     Active Substance: TRIMETAZIDINE DIHYDROCHLORIDE
     Indication: CARDIAC DISORDER
     Dosage: 2 DF, QD
     Route: 048
  5. ADDERA D3 [Concomitant]
     Active Substance: CHOLECALCIFEROL
     Indication: PRODUCT USED FOR UNKNOWN INDICATION
     Dosage: 2 DF, QMO (3 MONTHS AGO)
     Route: 048
  6. SPIRONOLACTONE. [Concomitant]
     Active Substance: SPIRONOLACTONE
     Indication: PRODUCT USED FOR UNKNOWN INDICATION
     Dosage: 1 DF, QD (START : 15 YEARS AGO)
     Route: 048
  7. GALVUS [Suspect]
     Active Substance: VILDAGLIPTIN
     Dosage: 50 MG, BID (ONE THE MORNING AND ONE AT NIGHT)
     Route: 065
  8. DIOVAN [Suspect]
     Active Substance: VALSARTAN
     Indication: HYPERTENSION
     Dosage: 80 MG, QD
     Route: 048
  9. LASIX [Concomitant]
     Active Substance: FUROSEMIDE
     Indication: SWELLING
     Dosage: 1 DF, QW
     Route: 048

REACTIONS (11)
  - Hypotension [Not Recovered/Not Resolved]
  - Haemorrhoids [Recovering/Resolving]
  - Plantar fasciitis [Recovering/Resolving]
  - Asthenia [Not Recovered/Not Resolved]
  - Myocardial infarction [Recovered/Resolved]
  - Arrhythmia [Recovering/Resolving]
  - Arthropathy [Not Recovered/Not Resolved]
  - Blood pressure increased [Unknown]
  - Diabetes mellitus [Recovering/Resolving]
  - Blood pressure fluctuation [Unknown]
  - Fistula [Recovering/Resolving]

NARRATIVE: CASE EVENT DATE: 2018
